FAERS Safety Report 4454459-4 (Version None)
Quarter: 2004Q3

REPORT INFORMATION
  Report Type: 
  Country: None (occurrence: None)
  Receive Date: 20040917
  Receipt Date: 20040917
  Transmission Date: 20050211
  Serious: Yes (Hospitalization)
  Sender: FDA-Public Use
  Company Number: None

PATIENT
  Sex: Female

DRUGS (13)
  1. VENLAFAXINE [Suspect]
     Indication: DEPRESSION
     Dosage: 75 MG BID ORAL
     Route: 048
     Dates: start: 20031211, end: 20040301
  2. TYLENOL [Concomitant]
  3. VIOXX [Concomitant]
  4. TOLBUTAMIDE [Concomitant]
  5. CLONAZEPAM [Concomitant]
  6. METFORMIN HCL [Concomitant]
  7. AVANDIA [Concomitant]
  8. HYDRALAZINE HCL [Concomitant]
  9. PREVACID [Concomitant]
  10. CLONIDINE HCL [Concomitant]
  11. LIPITOR [Concomitant]
  12. REGLAN [Concomitant]
  13. DILANTIL [Concomitant]

REACTIONS (2)
  - CONDITION AGGRAVATED [None]
  - CONVULSION [None]
